FAERS Safety Report 12736310 (Version 2)
Quarter: 2016Q4

REPORT INFORMATION
  Report Type: Spontaneous
  Country: DE (occurrence: DE)
  Receive Date: 20160913
  Receipt Date: 20161003
  Transmission Date: 20170207
  Serious: Yes (Hospitalization, Other)
  Sender: FDA-Public Use
  Company Number: DE-AMGEN-DEUSP2016120891

PATIENT
  Sex: Female
  Weight: 70 kg

DRUGS (4)
  1. DEXAMETHASONE. [Concomitant]
     Active Substance: DEXAMETHASONE
     Dosage: 20 MG,/8 MG
     Route: 042
     Dates: start: 20160810, end: 20160821
  2. BLINCYTO [Suspect]
     Active Substance: BLINATUMOMAB
     Dosage: 9 MUG,ABS/24 HOUR
     Route: 042
     Dates: start: 20160819, end: 20160820
  3. BLINCYTO [Suspect]
     Active Substance: BLINATUMOMAB
     Indication: ACUTE LYMPHOCYTIC LEUKAEMIA
     Dosage: 15 MUG/M2/24 HOUR
     Route: 042
     Dates: start: 20160809
  4. PARACETAMOL [Concomitant]
     Active Substance: ACETAMINOPHEN
     Dosage: 1 G
     Route: 048
     Dates: start: 20160810, end: 20160821

REACTIONS (7)
  - Urinary retention [Recovered/Resolved]
  - Somatic symptom disorder [Recovering/Resolving]
  - Tremor [Recovering/Resolving]
  - Apathy [Recovered/Resolved]
  - Aphasia [Recovering/Resolving]
  - Myoclonus [Recovering/Resolving]
  - Apraxia [Recovering/Resolving]

NARRATIVE: CASE EVENT DATE: 20160810
